FAERS Safety Report 7206270-9 (Version None)
Quarter: 2011Q1

REPORT INFORMATION
  Report Type: 
  Country: None (occurrence: None)
  Receive Date: 20110103
  Receipt Date: 20101220
  Transmission Date: 20110831
  Serious: Yes (Hospitalization)
  Sender: FDA-Public Use
  Company Number: PHHY2010DE86798

PATIENT
  Sex: Male

DRUGS (7)
  1. AMPHOTERICIN B [Concomitant]
  2. STEROIDS NOS [Concomitant]
  3. ULTRAVIOLET LIGHT [Concomitant]
  4. OIL-BATHES [Concomitant]
  5. STI571/CGP57148B [Suspect]
     Dosage: 400 MG, DAILY
     Route: 048
     Dates: start: 20090513, end: 20100413
  6. SALICYLIC ACID [Concomitant]
  7. UREA [Concomitant]

REACTIONS (11)
  - HYPERKERATOSIS [None]
  - ELECTROCARDIOGRAM ST SEGMENT ELEVATION [None]
  - CANDIDIASIS [None]
  - POLYNEUROPATHY [None]
  - C-REACTIVE PROTEIN INCREASED [None]
  - SKIN EXFOLIATION [None]
  - FULL BLOOD COUNT DECREASED [None]
  - PALMAR-PLANTAR ERYTHRODYSAESTHESIA SYNDROME [None]
  - BLOOD UREA INCREASED [None]
  - SKIN FISSURES [None]
  - XEROSIS [None]
